FAERS Safety Report 9586227 (Version 1)
Quarter: 2013Q4

REPORT INFORMATION
  Report Type: Spontaneous
  Country: US (occurrence: None)
  Receive Date: 20131002
  Receipt Date: 20131002
  Transmission Date: 20140711
  Serious: Yes (Disabling)
  Sender: FDA-Public Use
  Company Number: None

PATIENT
  Age: 45 Year
  Sex: Female
  Weight: 58.97 kg

DRUGS (7)
  1. LEVAQUIN [Suspect]
     Indication: URINARY TRACT INFECTION
     Dosage: 1 PILL
  2. NATUR-THROID [Concomitant]
  3. IODINE [Concomitant]
  4. VITAMIN D [Concomitant]
  5. CONVALLARIA MAJALIS\CRATAEGUS LAEVIGATA LEAF\PROXYPHYLLINE [Concomitant]
  6. COQ-10 [Concomitant]
  7. L-CARNITINE [Concomitant]

REACTIONS (3)
  - Neck pain [None]
  - Arthralgia [None]
  - Rotator cuff syndrome [None]
